FAERS Safety Report 23875681 (Version 1)
Quarter: 2024Q2

REPORT INFORMATION
  Report Type: Spontaneous
  Country: SI (occurrence: SI)
  Receive Date: 20240520
  Receipt Date: 20240520
  Transmission Date: 20240716
  Serious: Yes (Hospitalization, Other)
  Sender: FDA-Public Use
  Company Number: SI-CDSU_IT-SI-MEN-096028

PATIENT
  Age: 24 Year
  Sex: Male

DRUGS (11)
  1. CYCLOSPORINE [Suspect]
     Active Substance: CYCLOSPORINE
     Indication: Immunosuppressant drug therapy
     Dosage: 100 MG + 100 MG + 150 MG
     Route: 065
  2. CYCLOSPORINE [Suspect]
     Active Substance: CYCLOSPORINE
     Indication: Cutaneous vasculitis
  3. MONTELUKAST [Suspect]
     Active Substance: MONTELUKAST SODIUM
     Indication: Immunosuppressant drug therapy
     Dosage: 10 MG
     Route: 065
  4. MONTELUKAST [Suspect]
     Active Substance: MONTELUKAST SODIUM
     Indication: Cutaneous vasculitis
  5. PREDNISOLONE [Suspect]
     Active Substance: PREDNISOLONE
     Indication: Cutaneous vasculitis
     Dosage: 40 MG (REDUCED BY 5 MG WEEKLY TO 20 MG PER DAY)
     Route: 065
  6. PREDNISOLONE [Suspect]
     Active Substance: PREDNISOLONE
     Indication: Immunosuppressant drug therapy
  7. NAPROXEN [Suspect]
     Active Substance: NAPROXEN
     Indication: Pain management
     Dosage: 550 MG, Q12H
     Route: 065
  8. BILASTINE [Suspect]
     Active Substance: BILASTINE
     Indication: Cutaneous vasculitis
     Dosage: 20 MG, Q6H
     Route: 048
  9. BILASTINE [Suspect]
     Active Substance: BILASTINE
     Indication: Immunosuppressant drug therapy
  10. TICAGRELOR [Suspect]
     Active Substance: TICAGRELOR
     Indication: Cutaneous vasculitis
     Dosage: 90 MG, Q12H
     Route: 065
  11. PANTOPRAZOLE [Concomitant]
     Active Substance: PANTOPRAZOLE
     Indication: Product used for unknown indication
     Dosage: 40 MG
     Route: 065

REACTIONS (4)
  - Inappropriate schedule of product administration [Recovered/Resolved]
  - Product use in unapproved indication [Recovered/Resolved]
  - Urticarial vasculitis [Recovered/Resolved]
  - Overdose [Recovered/Resolved]
